FAERS Safety Report 16931666 (Version 2)
Quarter: 2020Q1

REPORT INFORMATION
  Report Type: Spontaneous
  Country: US (occurrence: US)
  Receive Date: 20191017
  Receipt Date: 20200324
  Transmission Date: 20200409
  Serious: Yes (Life-Threatening, Other)
  Sender: FDA-Public Use
  Company Number: US-FRESENIUS KABI-FK201911137

PATIENT
  Age: 55 Year
  Sex: Female
  Weight: 58.3 kg

DRUGS (9)
  1. TRIAMCINOLONE ACETONIDE. [Suspect]
     Active Substance: TRIAMCINOLONE ACETONIDE
     Dosage: IN THE LEFT KNEE, 1 ML/40 MG, 1MG SINGLE DOSE VIAL
     Route: 014
     Dates: start: 20191010, end: 20191010
  2. XYLOCAINE-MPF [Suspect]
     Active Substance: LIDOCAINE HYDROCHLORIDE
     Dosage: IN THE LEFT KNEE
     Route: 014
     Dates: start: 20191010, end: 20191010
  3. IBUPROFEN. [Concomitant]
     Active Substance: IBUPROFEN
     Indication: PRODUCT USED FOR UNKNOWN INDICATION
     Dosage: UNKNOWN
     Route: 065
  4. SENSORCAINE MPF [Suspect]
     Active Substance: BUPIVACAINE HYDROCHLORIDE
     Indication: PAIN MANAGEMENT
     Dosage: IN THE RIGHT SHOULDER
     Route: 014
     Dates: start: 20191010, end: 20191010
  5. XYLOCAINE-MPF [Suspect]
     Active Substance: LIDOCAINE HYDROCHLORIDE
     Indication: PAIN MANAGEMENT
     Dosage: IN THE RIGHT SHOULDER
     Route: 014
     Dates: start: 20191010, end: 20191010
  6. SENSORCAINE MPF [Suspect]
     Active Substance: BUPIVACAINE HYDROCHLORIDE
     Dosage: IN THE LEFT KNEE
     Route: 014
     Dates: start: 20191010, end: 20191010
  7. FLUTICASONE PROPIONATE. [Concomitant]
     Active Substance: FLUTICASONE PROPIONATE
     Indication: PRODUCT USED FOR UNKNOWN INDICATION
     Dosage: UNKNOWN
     Route: 065
  8. TRIAMCINOLONE ACETONIDE. [Suspect]
     Active Substance: TRIAMCINOLONE ACETONIDE
     Indication: INFLAMMATION
     Dosage: IN THE RIGHT SHOULDER, 1 ML/40 MG, 1MG SINGLE DOSE VIAL
     Route: 014
     Dates: start: 20191010, end: 20191010
  9. LIDOCAINE. [Concomitant]
     Active Substance: LIDOCAINE
     Indication: PRODUCT USED FOR UNKNOWN INDICATION
     Dosage: PATCH
     Route: 065

REACTIONS (1)
  - Anaphylactic reaction [Recovering/Resolving]

NARRATIVE: CASE EVENT DATE: 20191010
